FAERS Safety Report 7811026-X (Version None)
Quarter: 2011Q4

REPORT INFORMATION
  Report Type: 
  Country: None (occurrence: None)
  Receive Date: 20111011
  Receipt Date: 20110929
  Transmission Date: 20120403
  Serious: Yes (Other)
  Sender: FDA-Public Use
  Company Number: US-ACCORD-009902

PATIENT
  Age: 77 Year
  Sex: Female
  Weight: 68 kg

DRUGS (4)
  1. SIMVASTATIN [Suspect]
     Indication: HYPERCHOLESTEROLAEMIA
     Dosage: 20.00-MG-1.0DAYS / ORAL
     Route: 048
     Dates: start: 20110601, end: 20110712
  2. LISINOPRIL (LINISOPRIL) [Concomitant]
  3. HYDROCHLOROTHIAZIDE [Concomitant]
  4. SYNTHROID [Concomitant]

REACTIONS (3)
  - POLYURIA [None]
  - NOCTURIA [None]
  - FATIGUE [None]
